FAERS Safety Report 25953279 (Version 1)
Quarter: 2025Q4

REPORT INFORMATION
  Report Type: Spontaneous
  Country: US (occurrence: None)
  Receive Date: 20251023
  Receipt Date: 20251023
  Transmission Date: 20260117
  Serious: Yes (Disabling)
  Sender: FDA-CTU
  Company Number: None

PATIENT
  Age: 61 Year
  Sex: Female
  Weight: 50.85 kg

DRUGS (7)
  1. CLONAZEPAM [Suspect]
     Active Substance: CLONAZEPAM
     Indication: Burning mouth syndrome
     Dosage: FREQUENCY : TWICE A DAY;?
     Route: 048
     Dates: start: 20251022, end: 20251023
  2. OMEPRAZOLE [Concomitant]
     Active Substance: OMEPRAZOLE
  3. VITAMIN D [Concomitant]
     Active Substance: VITAMIN D NOS
  4. Caltrate minis 600 with D3 [Concomitant]
  5. ESTRADIOL [Concomitant]
     Active Substance: ESTRADIOL
  6. CLOBETASOL PROPIONATE [Concomitant]
     Active Substance: CLOBETASOL PROPIONATE
  7. MOTRIN [Concomitant]
     Active Substance: IBUPROFEN

REACTIONS (3)
  - Diplopia [None]
  - Somnolence [None]
  - Gait inability [None]

NARRATIVE: CASE EVENT DATE: 20251022
